FAERS Safety Report 8579798 (Version 3)
Quarter: 2013Q1

REPORT INFORMATION
  Report Type: Report from Study
  Country: TW (occurrence: TW)
  Receive Date: 20120525
  Receipt Date: 20130107
  Transmission Date: 20140127
  Serious: Yes (Hospitalization)
  Sender: FDA-Public Use
  Company Number: TW-JNJFOC-20120508477

PATIENT
  Age: 84 Year
  Sex: Male
  Weight: 66 kg

DRUGS (4)
  1. ABIRATERONE ACETATE [Suspect]
     Route: 048
  2. ABIRATERONE ACETATE [Suspect]
     Indication: PROSTATE CANCER METASTATIC
     Route: 048
     Dates: start: 20120323
  3. PREDNISOLONE [Suspect]
     Indication: PROSTATE CANCER METASTATIC
     Route: 048
     Dates: start: 20120323
  4. LEUPLIN [Concomitant]
     Indication: HORMONE THERAPY
     Route: 065
     Dates: start: 200904

REACTIONS (4)
  - Septic shock [Recovered/Resolved]
  - Urosepsis [Recovered/Resolved]
  - Pyrexia [Recovering/Resolving]
  - Feeling cold [Recovering/Resolving]
